FAERS Safety Report 10227931 (Version 1)
Quarter: 2014Q2

REPORT INFORMATION
  Report Type: Spontaneous
  Country: IN (occurrence: IN)
  Receive Date: 20140610
  Receipt Date: 20140610
  Transmission Date: 20141212
  Serious: Yes (Life-Threatening, Other)
  Sender: FDA-Public Use
  Company Number: IN-009507513-1406IND004631

PATIENT
  Age: 72 Year
  Sex: Male

DRUGS (2)
  1. JANUMET [Suspect]
     Indication: DIABETES MELLITUS
     Dosage: 50MG/1000 MG, BID
     Route: 048
  2. NOVOMIX [Concomitant]
     Dosage: UNK, TID

REACTIONS (3)
  - Hypoglycaemia [Not Recovered/Not Resolved]
  - Loss of consciousness [Not Recovered/Not Resolved]
  - Bundle branch block right [Not Recovered/Not Resolved]
